FAERS Safety Report 12596186 (Version 1)
Quarter: 2016Q3

REPORT INFORMATION
  Report Type: Spontaneous
  Country: US (occurrence: US)
  Receive Date: 20160726
  Receipt Date: 20160726
  Transmission Date: 20161109
  Serious: Yes (Other)
  Sender: FDA-Public Use
  Company Number: US-BAYER-2016-140040

PATIENT
  Age: 23 Year
  Sex: Female
  Weight: 56.69 kg

DRUGS (1)
  1. COPPERTONE SPORT PRO SERIES SPF 30 [Suspect]
     Active Substance: AVOBENZONE\HOMOSALATE\OCTISALATE\OCTOCRYLENE\OXYBENZONE
     Indication: PROPHYLAXIS AGAINST SOLAR RADIATION
     Dosage: 1 DF, PRN
     Route: 061
     Dates: start: 20160709, end: 20160709

REACTIONS (5)
  - Drug ineffective [None]
  - Blister [Recovering/Resolving]
  - Sunburn [Recovering/Resolving]
  - Pain [Recovering/Resolving]
  - Photosensitivity reaction [None]

NARRATIVE: CASE EVENT DATE: 201607
